FAERS Safety Report 4681093-3 (Version None)
Quarter: 2005Q2

REPORT INFORMATION
  Report Type: 
  Country: None (occurrence: None)
  Receive Date: 20050602
  Receipt Date: 20050602
  Transmission Date: 20051028
  Serious: Yes (Disabling)
  Sender: FDA-Public Use
  Company Number: None

PATIENT
  Age: 31 Year
  Sex: Male
  Weight: 99.7913 kg

DRUGS (2)
  1. STADOL [Suspect]
     Indication: MIGRAINE
     Dosage: 2.5 ML     DAILY   NASAL
     Route: 045
     Dates: start: 19990101, end: 20041201
  2. STADOL [Suspect]
     Indication: TENSION HEADACHE
     Dosage: 2.5 ML     DAILY   NASAL
     Route: 045
     Dates: start: 19990101, end: 20041201

REACTIONS (2)
  - DRUG DEPENDENCE [None]
  - DRUG WITHDRAWAL SYNDROME [None]
